FAERS Safety Report 9719693 (Version 6)
Quarter: 2014Q1

REPORT INFORMATION
  Report Type: Spontaneous
  Country: US (occurrence: US)
  Receive Date: 20131128
  Receipt Date: 20140114
  Transmission Date: 20141002
  Serious: No
  Sender: FDA-Public Use
  Company Number: US-009507513-1311USA007618

PATIENT
  Age: 22 Year
  Sex: Female
  Weight: 107.94 kg

DRUGS (1)
  1. IMPLANON [Suspect]
     Dosage: UNK
     Route: 059
     Dates: start: 20101118

REACTIONS (4)
  - Device deployment issue [Unknown]
  - Medical device complication [Unknown]
  - Medical device complication [Unknown]
  - Incorrect drug administration duration [Unknown]
